FAERS Safety Report 10009392 (Version 2)
Quarter: 2014Q1

REPORT INFORMATION
  Report Type: Spontaneous
  Country: US (occurrence: US)
  Receive Date: 20140313
  Receipt Date: 20140313
  Transmission Date: 20141002
  Serious: No
  Sender: FDA-Public Use
  Company Number: US-INCYTE CORPORATION-2012IN001184

PATIENT
  Sex: Female

DRUGS (13)
  1. JAKAFI [Suspect]
     Dosage: 20 MG, BID
  2. LASIX [Concomitant]
     Dosage: 20 MG, UNK
  3. SYNTHROID [Concomitant]
     Dosage: 100 MCG, UNK
  4. PRILOSEC [Concomitant]
     Dosage: 10 MG, UNK
  5. ALLOPURINOL [Concomitant]
     Dosage: 100 MG, UNK
  6. TEA, GREEN [Concomitant]
     Dosage: 150 MG, UNK
  7. PROBIOTICA [Concomitant]
  8. ALEVE [Concomitant]
  9. PROMETRIUM [Concomitant]
     Dosage: 200 MG, UNK
  10. VIVELLE-DOT [Concomitant]
     Dosage: 0.1 MG, UNK
  11. PYRIDIUM [Concomitant]
     Dosage: 100 MG, UNK
  12. ACIDOPHILUS [Concomitant]
  13. HYDREA [Concomitant]
     Dosage: 500 MG, UNK

REACTIONS (5)
  - Urinary tract infection [Unknown]
  - Haemoglobin decreased [Unknown]
  - Haematocrit decreased [Unknown]
  - Dyspepsia [Unknown]
  - Diarrhoea [Unknown]
